FAERS Safety Report 4834064-8 (Version None)
Quarter: 2005Q4

REPORT INFORMATION
  Report Type: 
  Country: None (occurrence: None)
  Receive Date: 20051122
  Receipt Date: 20051017
  Transmission Date: 20060501
  Serious: Yes (Hospitalization, Other)
  Sender: FDA-Public Use
  Company Number: IT-NOVOPROD-247880

PATIENT
  Age: 53 Year
  Sex: Male
  Weight: 75 kg

DRUGS (7)
  1. NOVOSEVEN [Suspect]
     Indication: CEREBRAL HAEMORRHAGE
     Dosage: 120 UG/KG, UNK
     Route: 042
     Dates: start: 20051015, end: 20051015
  2. CEFAZOLIN [Concomitant]
     Dosage: 6 UNK, QD
     Dates: start: 20051015, end: 20051017
  3. ESOMEPRAZOLE [Concomitant]
     Dosage: 40 MG, QD
     Dates: start: 20051016
  4. PROPOFOL [Concomitant]
     Indication: BRAIN CONTUSION
     Dosage: 350 MG / HRS
     Route: 042
     Dates: start: 20051015
  5. FENTANYL [Concomitant]
     Dosage: 0,1 MG/HRS
     Route: 042
     Dates: start: 20051015
  6. NORADRENALINE [Concomitant]
     Dosage: 0,08 UG/KG/MIN
     Route: 042
     Dates: start: 20051015
  7. DOPAMINE [Concomitant]
     Dosage: 8,3 UG/KG/MIN
     Route: 042
     Dates: start: 20051015

REACTIONS (7)
  - BLOOD PRESSURE DECREASED [None]
  - ELECTROCARDIOGRAM ST SEGMENT ELEVATION [None]
  - HEART RATE INCREASED [None]
  - INTRACRANIAL PRESSURE INCREASED [None]
  - MYOCARDIAL ISCHAEMIA [None]
  - TRANSVERSE SINUS THROMBOSIS [None]
  - TROPONIN INCREASED [None]
